FAERS Safety Report 6185652-0 (Version None)
Quarter: 2009Q2

REPORT INFORMATION
  Report Type: 
  Country: None (occurrence: None)
  Receive Date: 20090511
  Receipt Date: 20090430
  Transmission Date: 20091009
  Serious: Yes (Other)
  Sender: FDA-Public Use
  Company Number: PHEH2009US03612

PATIENT
  Sex: Male

DRUGS (5)
  1. DIOVAN [Suspect]
     Dosage: 80 MG, QD
     Route: 048
  2. DIOVAN [Suspect]
     Dosage: 320 MG, QD
     Route: 048
  3. DIOVAN HCT [Suspect]
     Dosage: 160/12.5 MG, QD
     Route: 048
  4. DIOVAN HCT [Suspect]
     Dosage: 320/25 MG, QD
     Route: 048
  5. HYDROCHLOROTHIAZIDE [Concomitant]
     Dosage: 25 MG, QD
     Route: 048

REACTIONS (15)
  - ASTHENIA [None]
  - BLOOD PRESSURE INADEQUATELY CONTROLLED [None]
  - CONFUSIONAL STATE [None]
  - DIZZINESS [None]
  - DRY MOUTH [None]
  - DYSPNOEA [None]
  - HEADACHE [None]
  - HEART RATE INCREASED [None]
  - IRRITABILITY [None]
  - LETHARGY [None]
  - MENTAL IMPAIRMENT [None]
  - MUSCLE FATIGUE [None]
  - MUSCLE SPASMS [None]
  - MYALGIA [None]
  - SOMNOLENCE [None]
